FAERS Safety Report 8255946-3 (Version None)
Quarter: 2012Q2

REPORT INFORMATION
  Report Type: 
  Country: None (occurrence: None)
  Receive Date: 20120403
  Receipt Date: 20120327
  Transmission Date: 20120825
  Serious: Yes (Death, Life-Threatening, Hospitalization)
  Sender: FDA-Public Use
  Company Number: US-ROCHE-1051074

PATIENT
  Sex: Female

DRUGS (1)
  1. RANIBIZUMAB [Suspect]
     Indication: MACULAR DEGENERATION
     Dosage: RECENT DOSE: 17 NOV 2011, DOSE: 0.05 ML
     Route: 050
     Dates: start: 20100726

REACTIONS (1)
  - HYPERTENSIVE CRISIS [None]
